FAERS Safety Report 19487717 (Version 2)
Quarter: 2021Q4

REPORT INFORMATION
  Report Type: Spontaneous
  Country: US (occurrence: US)
  Receive Date: 20210702
  Receipt Date: 20211028
  Transmission Date: 20220303
  Serious: No
  Sender: FDA-Public Use
  Company Number: US-JNJFOC-20210660462

PATIENT
  Age: 67 Year
  Sex: Male

DRUGS (6)
  1. TREMFYA [Suspect]
     Active Substance: GUSELKUMAB
     Indication: Psoriasis
     Dosage: RECEIVED TOTAL 3 INJECTIONS.
     Route: 058
     Dates: start: 20210416
  2. HYDROCHLOROTHIAZIDE [Interacting]
     Active Substance: HYDROCHLOROTHIAZIDE
     Indication: Product used for unknown indication
     Route: 065
  3. EXELDERM [SULCONAZOLE NITRATE] [Concomitant]
  4. LOSARTAN [Concomitant]
     Active Substance: LOSARTAN
  5. NORVASC [Concomitant]
     Active Substance: AMLODIPINE BESYLATE
  6. HALOBETASOL PROPIONATE [Concomitant]
     Active Substance: HALOBETASOL PROPIONATE

REACTIONS (2)
  - Lichenoid keratosis [Recovering/Resolving]
  - Drug interaction [Recovering/Resolving]

NARRATIVE: CASE EVENT DATE: 20210616
